FAERS Safety Report 4866286-4 (Version None)
Quarter: 2005Q4

REPORT INFORMATION
  Report Type: 
  Country: None (occurrence: None)
  Receive Date: 20051227
  Receipt Date: 20051104
  Transmission Date: 20060501
  Serious: Yes (Hospitalization)
  Sender: FDA-Public Use
  Company Number: US-SANOFI-SYNTHELABO-A03200503564

PATIENT
  Sex: Female
  Weight: 68 kg

DRUGS (5)
  1. AMBIEN [Suspect]
     Indication: INSOMNIA
     Route: 048
     Dates: start: 20050101
  2. HYDROCHLOROTHIAZIDE [Concomitant]
     Route: 048
  3. INDERAL LA [Concomitant]
     Route: 048
  4. EVISTA [Concomitant]
     Route: 048
  5. LISINOPRIL [Concomitant]
     Route: 048

REACTIONS (8)
  - AMNESIA [None]
  - CONSCIOUSNESS FLUCTUATING [None]
  - CONTUSION [None]
  - FALL [None]
  - FRACTURE [None]
  - PAIN [None]
  - RIB FRACTURE [None]
  - SLEEP WALKING [None]
